FAERS Safety Report 19055463 (Version 2)
Quarter: 2021Q1

REPORT INFORMATION
  Report Type: Spontaneous
  Country: NL (occurrence: NL)
  Receive Date: 20210324
  Receipt Date: 20210324
  Transmission Date: 20210420
  Serious: Yes (Other)
  Sender: FDA-Public Use
  Company Number: NL-MYLANLABS-2021M1016060

PATIENT
  Age: 45 Year
  Sex: Female
  Weight: 76 kg

DRUGS (5)
  1. AMLODIPINE [Suspect]
     Active Substance: AMLODIPINE BESYLATE
     Indication: HYPERTENSION
     Dosage: 5 MILLIGRAM, QD,1X1
     Dates: start: 20201213, end: 20210115
  2. ALLOPURINOL. [Concomitant]
     Active Substance: ALLOPURINOL
     Dosage: 50MG
  3. AZATHIOPRINE. [Concomitant]
     Active Substance: AZATHIOPRINE
     Dosage: TABLET, 25 MG (MILLIGRAM)
  4. NEBIVOLOL. [Concomitant]
     Active Substance: NEBIVOLOL
     Dosage: TABLET, 5 MG (MILLIGRAM)
  5. CANDESARTAN. [Concomitant]
     Active Substance: CANDESARTAN
     Dosage: TABLET, 8 MG (MILLIGRAM)

REACTIONS (3)
  - Dizziness [Unknown]
  - Deafness unilateral [Unknown]
  - Tinnitus [Unknown]

NARRATIVE: CASE EVENT DATE: 20201215
